FAERS Safety Report 5592313-5 (Version None)
Quarter: 2008Q1

REPORT INFORMATION
  Report Type: 
  Country: None (occurrence: None)
  Receive Date: 20080115
  Receipt Date: 20080107
  Transmission Date: 20080703
  Serious: Yes (Other)
  Sender: FDA-Public Use
  Company Number: US-GENENTECH-250009

PATIENT
  Age: 58 Year
  Sex: Female

DRUGS (2)
  1. RITUXAN [Suspect]
     Indication: IDIOPATHIC THROMBOCYTOPENIC PURPURA
     Dosage: UNK UNK, UNKNOWN
     Route: 065
     Dates: start: 20060601
  2. RITUXAN [Suspect]
     Dosage: UNK, QOW
     Dates: start: 20070926

REACTIONS (4)
  - BRONCHITIS [None]
  - DISTURBANCE IN ATTENTION [None]
  - OEDEMA PERIPHERAL [None]
  - VOMITING [None]
